FAERS Safety Report 11821192 (Version 1)
Quarter: 2015Q4

REPORT INFORMATION
  Report Type: Spontaneous
  Country: US (occurrence: US)
  Receive Date: 20151210
  Receipt Date: 20151210
  Transmission Date: 20160305
  Serious: No
  Sender: FDA-Public Use
  Company Number: US-JNJFOC-20150812423

PATIENT
  Age: 62 Year
  Sex: Female

DRUGS (5)
  1. PANTOPRAZOLE [Concomitant]
     Active Substance: PANTOPRAZOLE SODIUM
  2. LORAZEPAM. [Concomitant]
     Active Substance: LORAZEPAM
  3. EFFEXOR [Concomitant]
     Active Substance: VENLAFAXINE HYDROCHLORIDE
  4. IMBRUVICA [Suspect]
     Active Substance: IBRUTINIB
     Indication: CHRONIC LYMPHOCYTIC LEUKAEMIA
     Route: 048
     Dates: start: 20140829
  5. GINGER. [Concomitant]
     Active Substance: GINGER

REACTIONS (2)
  - Incorrect dose administered [Unknown]
  - Rash pruritic [Unknown]

NARRATIVE: CASE EVENT DATE: 20140829
